FAERS Safety Report 5776902-0 (Version None)
Quarter: 2008Q2

REPORT INFORMATION
  Report Type: 
  Country: None (occurrence: None)
  Receive Date: 20080617
  Receipt Date: 20080617
  Transmission Date: 20081010
  Serious: Yes (Hospitalization)
  Sender: FDA-Public Use
  Company Number: None

PATIENT
  Sex: Male
  Weight: 91.9 kg

DRUGS (12)
  1. MYCOPHENOLATE MOFETIL [Suspect]
     Indication: IMMUNOSUPPRESSION
     Dosage: 500MG PO Q12H
     Route: 048
     Dates: start: 20080218, end: 20080306
  2. PREDNISONE [Concomitant]
  3. TACROLIMUS [Concomitant]
  4. NYSTATIN [Concomitant]
  5. ACYCLOVIR SODIUM [Concomitant]
  6. BACTRIM [Concomitant]
  7. RANITIDINE HCL [Concomitant]
  8. PRAVASTATIN [Concomitant]
  9. INSULIN [Concomitant]
  10. DOCUSATE [Concomitant]
  11. MULTI-VITAMIN [Concomitant]
  12. TAMSULOSIN HCL [Concomitant]

REACTIONS (4)
  - BLOOD CREATININE DECREASED [None]
  - PLATELET COUNT DECREASED [None]
  - TRANSPLANT REJECTION [None]
  - WHITE BLOOD CELL COUNT DECREASED [None]
